FAERS Safety Report 5664507-1 (Version None)
Quarter: 2008Q1

REPORT INFORMATION
  Report Type: 
  Country: None (occurrence: None)
  Receive Date: 20080314
  Receipt Date: 20080312
  Transmission Date: 20080703
  Serious: Yes (Hospitalization)
  Sender: FDA-Public Use
  Company Number: B0511991A

PATIENT
  Sex: Female
  Weight: 3 kg

DRUGS (4)
  1. PAXIL [Suspect]
     Indication: PERSONALITY DISORDER
     Dosage: 10MG PER DAY
     Dates: end: 20080215
  2. LEVOTOMIN [Concomitant]
     Dates: end: 20080215
  3. RIVOTRIL [Concomitant]
     Dates: end: 20080215
  4. LITHIUM CARBONATE [Concomitant]
     Dates: end: 20080215

REACTIONS (4)
  - DRUG EXPOSURE DURING PREGNANCY [None]
  - DRUG WITHDRAWAL SYNDROME NEONATAL [None]
  - IRRITABILITY [None]
  - SOMNOLENCE [None]
